FAERS Safety Report 25158949 (Version 1)
Quarter: 2025Q2

REPORT INFORMATION
  Report Type: Spontaneous
  Country: US (occurrence: US)
  Receive Date: 20250404
  Receipt Date: 20250404
  Transmission Date: 20250716
  Serious: No
  Sender: RIGEL PHARMACEUTICALS
  Company Number: US-RIGEL Pharmaceuticals, INC-20241200116

PATIENT
  Age: 75 Year
  Sex: Male
  Weight: 79.102 kg

DRUGS (1)
  1. REZLIDHIA [Suspect]
     Active Substance: OLUTASIDENIB
     Indication: Acute leukaemia
     Dosage: 150 MG QD
     Route: 048
     Dates: start: 20230501

REACTIONS (4)
  - Cataract operation [Unknown]
  - Cataract operation complication [Unknown]
  - Off label use [Unknown]
  - Product prescribing issue [Unknown]

NARRATIVE: CASE EVENT DATE: 20241212
